FAERS Safety Report 14665402 (Version 1)
Quarter: 2018Q1

REPORT INFORMATION
  Report Type: Spontaneous
  Country: CA (occurrence: CA)
  Receive Date: 20180321
  Receipt Date: 20180321
  Transmission Date: 20180509
  Serious: Yes (Other)
  Sender: FDA-Public Use
  Company Number: CA-BAYER-2018-051335

PATIENT
  Age: 40 Year
  Sex: Female
  Weight: 58.96 kg

DRUGS (2)
  1. MIRENA [Suspect]
     Active Substance: LEVONORGESTREL
     Indication: CONTRACEPTION
     Dosage: 20 MCG/24HR, CONT
     Route: 015
  2. MIRENA [Suspect]
     Active Substance: LEVONORGESTREL
     Indication: CONTRACEPTION

REACTIONS (20)
  - Musculoskeletal stiffness [Unknown]
  - Pruritus generalised [Unknown]
  - Abdominal distension [Unknown]
  - Irritability [Unknown]
  - Pelvic pain [Unknown]
  - Chest discomfort [Unknown]
  - Chest pain [Unknown]
  - Arthralgia [Unknown]
  - Discomfort [Unknown]
  - Loss of libido [Unknown]
  - Paraesthesia [Unknown]
  - Myalgia [Unknown]
  - Back pain [Unknown]
  - Gastrooesophageal reflux disease [Unknown]
  - Palpitations [Unknown]
  - Decreased activity [Unknown]
  - Fatigue [Unknown]
  - Muscle spasms [Unknown]
  - Peripheral swelling [Unknown]
  - Throat tightness [Unknown]
